FAERS Safety Report 10051447 (Version 2)
Quarter: 2014Q2

REPORT INFORMATION
  Report Type: Report from Study
  Country: US (occurrence: US)
  Receive Date: 20140401
  Receipt Date: 20140429
  Transmission Date: 20141212
  Serious: Yes (Hospitalization)
  Sender: FDA-Public Use
  Company Number: US-B.I. PHARMACEUTICALS,INC./RIDGEFIELD-2014-BI-13023BI

PATIENT
  Age: 56 Year
  Sex: Male

DRUGS (11)
  1. GILOTRIF [Suspect]
     Indication: NON-SMALL CELL LUNG CANCER
     Dosage: 40 MG
     Route: 048
     Dates: start: 20140226, end: 20140322
  2. PREDNISONE [Concomitant]
     Route: 065
  3. ADVAIR DISKUS [Concomitant]
     Dosage: FORMULATION: DISC
     Route: 065
  4. AMLODIPINE [Concomitant]
     Route: 065
  5. GABAPENTIN [Concomitant]
     Route: 065
  6. FUROSEMIDE [Concomitant]
     Route: 065
  7. OXYCODONE [Concomitant]
     Route: 065
  8. OXYCONTINE [Concomitant]
     Route: 065
  9. BENADRYL [Concomitant]
     Route: 065
  10. COUGH SYRUP [Concomitant]
     Route: 065
  11. COUGH DROPS [Concomitant]
     Route: 065

REACTIONS (4)
  - Dizziness [Recovered/Resolved]
  - Pneumonia [Recovered/Resolved]
  - Vision blurred [Not Recovered/Not Resolved]
  - Pyrexia [Recovered/Resolved]
